FAERS Safety Report 5736661-4 (Version None)
Quarter: 2008Q2

REPORT INFORMATION
  Report Type: 
  Country: None (occurrence: None)
  Receive Date: 20080513
  Receipt Date: 20080501
  Transmission Date: 20081010
  Serious: Yes (Death, Hospitalization)
  Sender: FDA-Public Use
  Company Number: GB-PFIZER INC-2006061589

PATIENT
  Sex: Female
  Weight: 37 kg

DRUGS (4)
  1. SU-011,248 [Suspect]
     Indication: RENAL CELL CARCINOMA
     Route: 048
  2. DEXAMETHASONE [Concomitant]
     Route: 048
  3. LYRICA [Concomitant]
     Route: 048
  4. FENTANYL CITRATE [Concomitant]
     Route: 061

REACTIONS (3)
  - DYSPNOEA [None]
  - NEUTROPENIA [None]
  - PLEURAL EFFUSION [None]
